FAERS Safety Report 6234731-8 (Version None)
Quarter: 2009Q2

REPORT INFORMATION
  Report Type: 
  Country: None (occurrence: None)
  Receive Date: 20090615
  Receipt Date: 20090217
  Transmission Date: 20091009
  Serious: No
  Sender: FDA-Public Use
  Company Number: DSA_33239_2009

PATIENT
  Sex: Male
  Weight: 60.782 kg

DRUGS (10)
  1. XENAZINE [Suspect]
     Indication: HUNTINGTON'S CHOREA
     Dosage: 12.5 MG QD ORAL
     Route: 048
     Dates: start: 20090212
  2. VALPROIC ACID [Concomitant]
  3. POTASSIUM CHLORIDE [Concomitant]
  4. LOMOTIL [Concomitant]
  5. ATIVAN [Concomitant]
  6. CATAPRES [Concomitant]
  7. BACLOFEN [Concomitant]
  8. SOMA [Concomitant]
  9. LEXAPRO [Concomitant]
  10. HALDOL [Concomitant]

REACTIONS (2)
  - DRUG INEFFECTIVE [None]
  - PRODUCT QUALITY ISSUE [None]
